FAERS Safety Report 13885138 (Version 3)
Quarter: 2017Q3

REPORT INFORMATION
  Report Type: Spontaneous
  Country: GB (occurrence: GB)
  Receive Date: 20170821
  Receipt Date: 20170830
  Transmission Date: 20171127
  Serious: Yes (Other)
  Sender: FDA-Public Use
  Company Number: GB-JNJFOC-20170810523

PATIENT
  Age: 2 Month
  Sex: Male

DRUGS (1)
  1. CALPOL [Suspect]
     Active Substance: ACETAMINOPHEN
     Indication: PYREXIA
     Route: 065

REACTIONS (6)
  - Choking [Recovered/Resolved]
  - Cough [Unknown]
  - Syringe issue [Unknown]
  - Respiratory arrest [Recovered/Resolved]
  - Complication associated with device [None]
  - Cyanosis [Unknown]

NARRATIVE: CASE EVENT DATE: 20170810
